FAERS Safety Report 11145296 (Version 3)
Quarter: 2015Q3

REPORT INFORMATION
  Report Type: Report from Study
  Country: CN (occurrence: CN)
  Receive Date: 20150528
  Receipt Date: 20150702
  Transmission Date: 20151125
  Serious: Yes (Hospitalization)
  Sender: FDA-Public Use
  Company Number: CN-ROCHE-1579211

PATIENT
  Age: 50 Year
  Sex: Male
  Weight: 50 kg

DRUGS (45)
  1. OXYCODONE HYDROCHLORIDE. [Concomitant]
     Active Substance: OXYCODONE HYDROCHLORIDE
     Route: 048
     Dates: start: 20150418, end: 20150419
  2. OXYCODONE HYDROCHLORIDE. [Concomitant]
     Active Substance: OXYCODONE HYDROCHLORIDE
     Route: 048
     Dates: start: 20150420, end: 20150427
  3. OXYCODONE HYDROCHLORIDE. [Concomitant]
     Active Substance: OXYCODONE HYDROCHLORIDE
     Route: 048
     Dates: start: 20150509, end: 20150509
  4. LEVOCARNITINE. [Concomitant]
     Active Substance: LEVOCARNITINE
     Dosage: INDICATION:TO PROTECT THE MYOCARDIUM
     Route: 042
     Dates: start: 20150418, end: 20150420
  5. LEVOCARNITINE. [Concomitant]
     Active Substance: LEVOCARNITINE
     Dosage: INDICATION:TO PROTECT THE MYOCARDIUM
     Route: 042
     Dates: start: 20150511, end: 20150515
  6. LANSOPRAZOLE. [Concomitant]
     Active Substance: LANSOPRAZOLE
     Dosage: INDICATION:ACID SUPPRESSION
     Route: 042
     Dates: start: 20150418, end: 20150427
  7. ALMAGATE [Concomitant]
     Active Substance: ALMAGATE
     Dosage: INDICATION: ACID SUPPRESSION
     Route: 048
     Dates: start: 20150512, end: 20150515
  8. LOPERAMIDE HYDROCHLORIDE. [Concomitant]
     Active Substance: LOPERAMIDE HYDROCHLORIDE
     Dosage: INDICATION:ANTIDIARRHEAL
     Route: 048
     Dates: start: 20150320
  9. LOPERAMIDE HYDROCHLORIDE. [Concomitant]
     Active Substance: LOPERAMIDE HYDROCHLORIDE
     Dosage: SELECT IF ONGOING=NO
     Route: 048
     Dates: start: 20150418, end: 20150427
  10. INTERLEUKIN-11 [Concomitant]
     Dosage: INDICATION: INCREASED PLATELET
     Route: 058
     Dates: start: 20150417, end: 20150424
  11. AMINO ACID [Concomitant]
     Indication: NUTRITIONAL SUPPLEMENTATION
     Dosage: INDICATION:NUTRITIONAL SUPPORT
     Route: 042
     Dates: start: 20150418, end: 20150419
  12. PLACENTA POLYPEPTIDE [Concomitant]
     Dosage: INDICATION:ENHANCE IMMUNITY
     Route: 042
     Dates: start: 20150418, end: 20150427
  13. METOCLOPRAMIDE DIHYDROCHLORIDE [Concomitant]
     Dosage: INDICATION:ANTINAUSEA
     Route: 030
     Dates: start: 20150421, end: 20150421
  14. MORPHINE HYDROCHLORIDE [Concomitant]
     Active Substance: MORPHINE HYDROCHLORIDE
     Dosage: SELECT IF ONGOING=NO
     Route: 058
     Dates: start: 20150508, end: 20150508
  15. MOXIFLOXACIN HYDROCHLORIDE. [Concomitant]
     Active Substance: MOXIFLOXACIN HYDROCHLORIDE
     Dosage: INDICATION: ANTIINFECTION
     Route: 042
     Dates: start: 20150510, end: 20150515
  16. OXYCODONE HYDROCHLORIDE. [Concomitant]
     Active Substance: OXYCODONE HYDROCHLORIDE
     Dosage: SELECT IF ONGOING=NO
     Route: 048
     Dates: start: 20141221, end: 20150427
  17. OXYCODONE HYDROCHLORIDE. [Concomitant]
     Active Substance: OXYCODONE HYDROCHLORIDE
     Dosage: SELECT IF ONGOING=NO
     Route: 048
     Dates: start: 20141216, end: 20150419
  18. VITAMIN C [Concomitant]
     Active Substance: ASCORBIC ACID
     Dosage: INDICATION:ENHANCE IMMUNITY
     Route: 042
     Dates: start: 20150418, end: 20150420
  19. LANSOPRAZOLE. [Concomitant]
     Active Substance: LANSOPRAZOLE
     Route: 042
     Dates: start: 20150510, end: 20150512
  20. LEVOFLOXACIN HYDROCHLORIDE [Concomitant]
     Active Substance: LEVOFLOXACIN
     Dosage: INDICATION:ANTI-MICROBIAL
     Route: 042
     Dates: start: 20150419, end: 20150427
  21. FUROSEMIDE. [Concomitant]
     Active Substance: FUROSEMIDE
     Indication: POLYURIA
     Dosage: INDICATION:DIURESIS
     Route: 042
     Dates: start: 20150421, end: 20150425
  22. CHYMOTRYPSIN [Concomitant]
     Active Substance: CHYMOTRYPSIN
     Dosage: 4000 U, INDICATION: PROTOMOTE WOUND HEALING
     Route: 055
     Dates: start: 20150425, end: 20150427
  23. MORPHINE HYDROCHLORIDE [Concomitant]
     Active Substance: MORPHINE HYDROCHLORIDE
     Dosage: SELECT IF ONGOING=NO
     Route: 058
     Dates: start: 20150512, end: 20150512
  24. CISPLATIN. [Suspect]
     Active Substance: CISPLATIN
     Indication: HER-2 POSITIVE GASTRIC CANCER
     Dosage: DATE OF MOST RECENT DOSE PRIOR TO THE EVENT: 30/MAR/2015
     Route: 042
     Dates: start: 20141229, end: 20150330
  25. ALANYL-GLUTAMINE [Concomitant]
     Indication: NUTRITIONAL SUPPLEMENTATION
     Dosage: INDICATION:NUTRITIONAL SUPPORT
     Route: 042
     Dates: start: 20150418, end: 20150419
  26. MORPHINE HYDROCHLORIDE [Concomitant]
     Active Substance: MORPHINE HYDROCHLORIDE
     Dosage: SELECT IF ONGOING=NO
     Route: 058
     Dates: start: 20150511, end: 20150511
  27. TRASTUZUMAB [Suspect]
     Active Substance: TRASTUZUMAB
     Indication: HER-2 POSITIVE GASTRIC CANCER
     Dosage: LOADING DOSE
     Route: 042
     Dates: start: 20141229, end: 20150330
  28. OXYCODONE HYDROCHLORIDE. [Concomitant]
     Active Substance: OXYCODONE HYDROCHLORIDE
     Route: 048
     Dates: start: 20150507, end: 20150508
  29. OXYCODONE HYDROCHLORIDE. [Concomitant]
     Active Substance: OXYCODONE HYDROCHLORIDE
     Route: 048
     Dates: start: 20150511, end: 20150521
  30. THYMOPENTIN [Concomitant]
     Active Substance: THYMOPENTIN
     Dosage: INDICATION: ENHANCE IMMUNITY
     Route: 058
     Dates: start: 20150418, end: 20150424
  31. COMPOSITE POTASSIUM HYDROGEN PHOSPHATE [Concomitant]
     Dosage: INDICATION:TO MAINTAIN WATER AND ELECTROLYTE BALANCE
     Route: 042
     Dates: start: 20150418, end: 20150420
  32. TRIGLYCERIDES [Concomitant]
     Indication: NUTRITIONAL SUPPLEMENTATION
     Dosage: SELECT IF ONGOING=NO
     Route: 042
     Dates: start: 20150420, end: 20150422
  33. AMBROXOL HYDROCHLORIDE [Concomitant]
     Active Substance: AMBROXOL HYDROCHLORIDE
     Indication: PRODUCTIVE COUGH
     Dosage: SELECT IF ONGOING=NO
     Route: 055
     Dates: start: 20150425, end: 20150427
  34. MORPHINE HYDROCHLORIDE [Concomitant]
     Active Substance: MORPHINE HYDROCHLORIDE
     Dosage: ANALGESIC
     Route: 048
     Dates: start: 20150513, end: 20150521
  35. PERTUZUMAB [Suspect]
     Active Substance: PERTUZUMAB
     Indication: HER-2 POSITIVE GASTRIC CANCER
     Dosage: DATE OF MOST RECENT DOSE PRIOR TO THE EVENT: 30/MAR/2015
     Route: 042
     Dates: start: 20141229, end: 20150330
  36. CAPECITABINE. [Suspect]
     Active Substance: CAPECITABINE
     Indication: HER-2 POSITIVE GASTRIC CANCER
     Dosage: DATE OF MOST RECENT DOSE PRIOR TO THE EVENT: 30/MAR/2015
     Route: 048
     Dates: start: 20141229, end: 20150330
  37. OXYCODONE HYDROCHLORIDE. [Concomitant]
     Active Substance: OXYCODONE HYDROCHLORIDE
     Dosage: INDICATION: ANALGESIC
     Route: 048
     Dates: start: 20141217
  38. COMPOSITE POTASSIUM HYDROGEN PHOSPHATE [Concomitant]
     Dosage: SELECT IF ONGOING=NO
     Route: 042
     Dates: start: 20150420, end: 20150427
  39. PLACENTA POLYPEPTIDE [Concomitant]
     Dosage: INDICATION:ENHANCE IMMUNITY
     Route: 042
     Dates: start: 20150511, end: 20150515
  40. TRASTUZUMAB [Suspect]
     Active Substance: TRASTUZUMAB
     Dosage: MAINTAINENCE DOSE (6 MG/KG)
     Route: 042
     Dates: start: 20150119, end: 20150330
  41. COMPOSITE POTASSIUM HYDROGEN PHOSPHATE [Concomitant]
     Dosage: SELECT IF ONGOING=NO
     Route: 042
     Dates: start: 20150511, end: 20150515
  42. VITAMIN C [Concomitant]
     Active Substance: ASCORBIC ACID
     Dosage: POWDER INJECTION
     Route: 042
     Dates: start: 20150511, end: 20150515
  43. POTASSIUM ASPARTATE [Concomitant]
     Active Substance: POTASSIUM ASPARTATE
     Indication: BLOOD ELECTROLYTES
     Dosage: INDICATION: ELECTROLYTES
     Route: 042
     Dates: start: 20150418, end: 20150424
  44. AMINO ACID [Concomitant]
     Dosage: INDICATION:NUTRITIONAL SUPORT
     Route: 042
     Dates: start: 20150420, end: 20150422
  45. IRON SUCROSE [Concomitant]
     Active Substance: IRON SUCROSE
     Indication: ANAEMIA
     Dosage: SELECT IF ONGOING=NO
     Route: 042
     Dates: start: 20150423, end: 20150427

REACTIONS (1)
  - Atrial septal defect acquired [Not Recovered/Not Resolved]

NARRATIVE: CASE EVENT DATE: 20150515
